FAERS Safety Report 13034123 (Version 1)
Quarter: 2016Q4

REPORT INFORMATION
  Report Type: Spontaneous
  Country: US (occurrence: US)
  Receive Date: 20161216
  Receipt Date: 20161216
  Transmission Date: 20170207
  Serious: No
  Sender: FDA-Public Use
  Company Number: US-ENDO PHARMACEUTICALS INC.-2016-001274

PATIENT
  Sex: Female
  Weight: 81.72 kg

DRUGS (3)
  1. RHEUMATREX [Suspect]
     Active Substance: METHOTREXATE SODIUM
     Indication: PRODUCT USED FOR UNKNOWN INDICATION
     Route: 065
     Dates: start: 201402, end: 201406
  2. TYLENOL [Concomitant]
     Active Substance: ACETAMINOPHEN
     Indication: RHEUMATOID ARTHRITIS
  3. RHEUMATREX [Suspect]
     Active Substance: METHOTREXATE SODIUM
     Route: 065
     Dates: start: 201406, end: 20141205

REACTIONS (14)
  - Dry eye [Recovered/Resolved]
  - Scar [Not Recovered/Not Resolved]
  - Gastrointestinal disorder [Recovered/Resolved]
  - Hypotonia [Not Recovered/Not Resolved]
  - Photosensitivity reaction [Recovering/Resolving]
  - Sunburn [Not Recovered/Not Resolved]
  - Cardiac disorder [Recovered/Resolved]
  - Hair disorder [Recovered/Resolved]
  - Skin disorder [Not Recovered/Not Resolved]
  - Hepatic enzyme increased [Recovered/Resolved]
  - Dry skin [Recovered/Resolved]
  - Urine odour abnormal [Recovered/Resolved]
  - Urine viscosity increased [Recovered/Resolved]
  - Alopecia [Recovered/Resolved]

NARRATIVE: CASE EVENT DATE: 2014
